FAERS Safety Report 8875491 (Version 1)
Quarter: 2012Q4

REPORT INFORMATION
  Report Type: 
  Country: ES (occurrence: ES)
  Receive Date: 20121030
  Receipt Date: 20121030
  Transmission Date: 20130627
  Serious: Yes (Death, Hospitalization)
  Sender: FDA-Public Use
  Company Number: ES-WATSON-2012-18476

PATIENT
  Age: 78 Year
  Sex: Female

DRUGS (3)
  1. PREDNISONE (UNKNOWN) [Suspect]
     Indication: RHEUMATOID ARTHRITIS
     Dosage: UNK
     Route: 065
  2. METHOTREXATE [Suspect]
     Indication: RHEUMATOID ARTHRITIS
     Dosage: 20 mg, 1/week
     Route: 065
  3. ETANERCEPT [Suspect]
     Indication: RHEUMATOID ARTHRITIS
     Dosage: 50 mg, 1/week
     Route: 065
     Dates: start: 201107, end: 201108

REACTIONS (4)
  - Pancytopenia [Fatal]
  - Multi-organ failure [Fatal]
  - Septic shock [Fatal]
  - Pneumonia [Fatal]
